FAERS Safety Report 11450169 (Version 8)
Quarter: 2019Q1

REPORT INFORMATION
  Report Type: Report from Study
  Country: CA (occurrence: CA)
  Receive Date: 20150903
  Receipt Date: 20190206
  Transmission Date: 20190417
  Serious: Yes (Other)
  Sender: FDA-Public Use
  Company Number: CA-ROCHE-1629749

PATIENT
  Age: 40 Year
  Sex: Female

DRUGS (5)
  1. NAPROXEN. [Concomitant]
     Active Substance: NAPROXEN
  2. NEXIUM [Concomitant]
     Active Substance: ESOMEPRAZOLE MAGNESIUM
     Dosage: FREQUENCY TIME: AS REQUIRED
     Route: 065
  3. CODEINE [Concomitant]
     Active Substance: CODEINE
     Dosage: FREQUENCY TIME: AS REQUIRED
     Route: 065
  4. ACTEMRA [Suspect]
     Active Substance: TOCILIZUMAB
     Indication: RHEUMATOID ARTHRITIS
     Route: 042
     Dates: start: 20150806
  5. PLAQUENIL [Concomitant]
     Active Substance: HYDROXYCHLOROQUINE SULFATE
     Dosage: FREQUENCY TIME: AS REQUIRED
     Route: 065

REACTIONS (11)
  - Skin ulcer [Recovering/Resolving]
  - Productive cough [Not Recovered/Not Resolved]
  - Food poisoning [Not Recovered/Not Resolved]
  - Sinusitis [Recovering/Resolving]
  - Pyrexia [Recovered/Resolved]
  - Gastroenteritis [Unknown]
  - Skin laceration [Not Recovered/Not Resolved]
  - Headache [Recovered/Resolved]
  - Urinary tract infection [Unknown]
  - Cough [Recovering/Resolving]
  - Bronchitis [Recovering/Resolving]

NARRATIVE: CASE EVENT DATE: 20170201
